FAERS Safety Report 5521507-X (Version None)
Quarter: 2007Q4

REPORT INFORMATION
  Report Type: 
  Country: None (occurrence: None)
  Receive Date: 20071119
  Receipt Date: 20071112
  Transmission Date: 20080405
  Serious: Yes (Death)
  Sender: FDA-Public Use
  Company Number: FR-PFIZER INC-2007094743

PATIENT
  Age: 24 Year
  Sex: Male

DRUGS (8)
  1. SOLU-MEDROL [Suspect]
     Indication: PROPHYLACTIC CHEMOTHERAPY
     Route: 042
     Dates: start: 20071001, end: 20071005
  2. ETOPOSIDE [Suspect]
     Indication: TESTIS CANCER
     Route: 042
     Dates: start: 20071001, end: 20071005
  3. BLEOMYCIN [Suspect]
     Indication: TESTIS CANCER
     Dosage: DAILY DOSE:30MG
     Route: 042
     Dates: start: 20071001, end: 20071001
  4. CISPLATIN [Suspect]
     Indication: TESTIS CANCER
     Route: 042
     Dates: start: 20071001, end: 20071005
  5. PLITICAN [Suspect]
     Indication: DRUG USE FOR UNKNOWN INDICATION
     Route: 042
     Dates: start: 20071001, end: 20071005
  6. ZOPHREN [Suspect]
     Indication: PROPHYLACTIC CHEMOTHERAPY
     Route: 042
     Dates: start: 20071001, end: 20071005
  7. HYDROCORTISONE HYDROGEN SUCCINATE [Suspect]
     Indication: PROPHYLACTIC CHEMOTHERAPY
     Dates: start: 20071001, end: 20071005
  8. EMEND [Suspect]
     Indication: DRUG USE FOR UNKNOWN INDICATION
     Route: 048
     Dates: start: 20071001, end: 20071003

REACTIONS (1)
  - CARDIAC ARREST [None]
